FAERS Safety Report 11302189 (Version 1)
Quarter: 2015Q3

REPORT INFORMATION
  Report Type: Spontaneous
  Country: US (occurrence: None)
  Receive Date: 20150723
  Receipt Date: 20150723
  Transmission Date: 20151125
  Serious: Yes (Other)
  Sender: FDA-Public Use
  Company Number: None

PATIENT
  Age: 63 Year
  Sex: Female
  Weight: 50.8 kg

DRUGS (4)
  1. METAXALONE 800MG COREO [Suspect]
     Active Substance: METAXALONE
     Indication: MUSCLE STRAIN
     Dates: start: 20150623, end: 20150624
  2. ADDERALL [Concomitant]
     Active Substance: AMPHETAMINE ASPARTATE\AMPHETAMINE SULFATE\DEXTROAMPHETAMINE SACCHARATE\DEXTROAMPHETAMINE SULFATE
  3. BISOPROLOL-HCTZ [Concomitant]
  4. TEMAZEPAM. [Concomitant]
     Active Substance: TEMAZEPAM

REACTIONS (8)
  - Therapy change [None]
  - Alcohol use [None]
  - Loss of consciousness [None]
  - Malaise [None]
  - Dizziness [None]
  - Feeling abnormal [None]
  - Decreased appetite [None]
  - Insomnia [None]

NARRATIVE: CASE EVENT DATE: 20150624
